FAERS Safety Report 8509111-2 (Version None)
Quarter: 2012Q3

REPORT INFORMATION
  Report Type: 
  Country: None (occurrence: None)
  Receive Date: 20120713
  Receipt Date: 20120703
  Transmission Date: 20120928
  Serious: Yes (Hospitalization)
  Sender: FDA-Public Use
  Company Number: US-GLAXOSMITHKLINE-A0869345A

PATIENT
  Age: 47 Year
  Sex: Female

DRUGS (1)
  1. AVANDIA [Suspect]
     Indication: TYPE 2 DIABETES MELLITUS
     Dosage: 4MG TWICE PER DAY
     Route: 065
     Dates: start: 20061010, end: 20090201

REACTIONS (6)
  - MACULAR OEDEMA [None]
  - HEART RATE IRREGULAR [None]
  - EMOTIONAL DISORDER [None]
  - DIABETES MELLITUS [None]
  - ANAEMIA [None]
  - FRACTURE [None]
